FAERS Safety Report 5008372-4 (Version None)
Quarter: 2006Q2

REPORT INFORMATION
  Report Type: 
  Country: None (occurrence: None)
  Receive Date: 20060404
  Receipt Date: 20060130
  Transmission Date: 20061013
  Serious: No
  Sender: FDA-Public Use
  Company Number: US200601005386

PATIENT
  Age: 82 Year
  Sex: Female

DRUGS (8)
  1. CYMBALTA [Suspect]
     Indication: DIABETIC NEUROPATHY
     Dosage: SEE IMAGE
     Dates: start: 20050101
  2. ASA (ASPIRIN (ACETYLSALICYLIC ACID) [Concomitant]
  3. LIPITOR [Concomitant]
  4. DIOVAN HCT [Concomitant]
  5. AMARYL /SWE/ (GLIMEPIRIDE) [Concomitant]
  6. METFORMIN [Concomitant]
  7. NORVASC [Concomitant]
  8. MICRO-K (POTASSIUM CHLORIDE) [Concomitant]

REACTIONS (2)
  - DRUG INEFFECTIVE [None]
  - PAIN [None]
